FAERS Safety Report 9461357 (Version 2)
Quarter: 2013Q3

REPORT INFORMATION
  Report Type: Spontaneous
  Country: CL (occurrence: CL)
  Receive Date: 20130816
  Receipt Date: 20130925
  Transmission Date: 20140515
  Serious: Yes (Hospitalization)
  Sender: FDA-Public Use
  Company Number: CL-ACCORD-018959

PATIENT
  Age: 28 Year
  Sex: Male

DRUGS (3)
  1. MYCOPHENOLATE MOFETIL [Suspect]
     Indication: CHEMOTHERAPY
  2. TACROLIMUS [Suspect]
     Indication: CHEMOTHERAPY
  3. CYCLOSPORINE [Concomitant]
     Indication: CHEMOTHERAPY

REACTIONS (3)
  - Histiocytosis haematophagic [Recovered/Resolved]
  - Thrombophlebitis [Unknown]
  - Diarrhoea [Unknown]
